FAERS Safety Report 13459716 (Version 3)
Quarter: 2017Q3

REPORT INFORMATION
  Report Type: Report from Study
  Country: None (occurrence: US)
  Receive Date: 20170420
  Receipt Date: 20170824
  Transmission Date: 20171127
  Serious: Yes (Hospitalization, Other)
  Sender: FDA-Public Use
  Company Number: US-ABBVIE-17K-163-1909643-00

PATIENT
  Sex: Male

DRUGS (2)
  1. HUMIRA [Suspect]
     Active Substance: ADALIMUMAB
     Indication: CROHN^S DISEASE
     Route: 058
     Dates: start: 2016, end: 201701
  2. PREDNISONE. [Suspect]
     Active Substance: PREDNISONE
     Indication: PRODUCT USED FOR UNKNOWN INDICATION
     Route: 065

REACTIONS (7)
  - Peripheral swelling [Recovering/Resolving]
  - Infected skin ulcer [Recovered/Resolved]
  - Skin ulcer [Recovered/Resolved]
  - Laceration [Unknown]
  - Impaired healing [Unknown]
  - Irritability [Unknown]
  - Wound secretion [Recovering/Resolving]

NARRATIVE: CASE EVENT DATE: 2017
